FAERS Safety Report 8400910 (Version 2)
Quarter: 2013Q1

REPORT INFORMATION
  Report Type: Spontaneous
  Country: US (occurrence: US)
  Receive Date: 20120210
  Receipt Date: 20130219
  Transmission Date: 20140127
  Serious: No
  Sender: FDA-Public Use
  Company Number: US-BRISTOL-MYERS SQUIBB COMPANY-16260861

PATIENT
  Age: 51 Year
  Sex: Female
  Weight: 48.07 kg

DRUGS (6)
  1. ORENCIA [Suspect]
     Dosage: STOPPED 6TO 7YEARS AGO?INF:3
     Route: 042
  2. METHOTREXATE [Concomitant]
  3. LEVOTHYROXIN [Concomitant]
  4. FOLIC ACID [Concomitant]
  5. PREDNISONE [Concomitant]
  6. RANITIDINE [Concomitant]

REACTIONS (1)
  - Drug ineffective [Unknown]
